FAERS Safety Report 9323719 (Version 3)
Quarter: 2013Q3

REPORT INFORMATION
  Report Type: Report from Study
  Country: JP (occurrence: JP)
  Receive Date: 20130603
  Receipt Date: 20130704
  Transmission Date: 20140515
  Serious: Yes (Other)
  Sender: FDA-Public Use
  Company Number: JP-ELI_LILLY_AND_COMPANY-JP201305007837

PATIENT
  Age: 77 Year
  Sex: Female

DRUGS (1)
  1. TERIPARATIDE [Suspect]
     Dosage: UNK
     Route: 058
     Dates: start: 20130221, end: 20130523

REACTIONS (9)
  - Renal failure [Unknown]
  - Oedema peripheral [Recovering/Resolving]
  - Weight decreased [Unknown]
  - Injection site bruising [Unknown]
  - Dyspnoea [Not Recovered/Not Resolved]
  - Eye discharge [Unknown]
  - Vitreous floaters [Unknown]
  - Visual acuity reduced [Not Recovered/Not Resolved]
  - Muscular weakness [Not Recovered/Not Resolved]
